FAERS Safety Report 17171685 (Version 2)
Quarter: 2020Q1

REPORT INFORMATION
  Report Type: Report from Study
  Country: US (occurrence: US)
  Receive Date: 20191218
  Receipt Date: 20200117
  Transmission Date: 20200409
  Serious: Yes (Hospitalization)
  Sender: FDA-Public Use
  Company Number: US-ACTELION-A-US2017-149852

PATIENT
  Age: 81 Year
  Sex: Female
  Weight: 77.1 kg

DRUGS (20)
  1. SYNTHROID [Concomitant]
     Active Substance: LEVOTHYROXINE SODIUM
  2. ACIPHEX [Concomitant]
     Active Substance: RABEPRAZOLE SODIUM
  3. DEMADEX [Concomitant]
     Active Substance: TORSEMIDE
  4. PREVALITE [Concomitant]
     Active Substance: CHOLESTYRAMINE
  5. OPSUMIT [Suspect]
     Active Substance: MACITENTAN
     Indication: PULMONARY ARTERIAL HYPERTENSION
     Dosage: 10 MG, QD
     Route: 048
     Dates: start: 20160308
  6. CHOLECALCIFEROL [Concomitant]
     Active Substance: CHOLECALCIFEROL
  7. ASTELIN [Concomitant]
     Active Substance: AZELASTINE HYDROCHLORIDE
     Dosage: 137 MCG
     Route: 045
  8. CALCIUM CARBONATE W/COLECALCIFEROL [Concomitant]
     Active Substance: CALCIUM CARBONATE\CHOLECALCIFEROL
  9. ALDACTONE [Concomitant]
     Active Substance: SPIRONOLACTONE
  10. TEMOVATE [Concomitant]
     Active Substance: CLOBETASOL PROPIONATE
  11. ULTRAM [Concomitant]
     Active Substance: TRAMADOL HYDROCHLORIDE
  12. ACETAMINOPHEN. [Concomitant]
     Active Substance: ACETAMINOPHEN
  13. BABY ASPIRIN [Concomitant]
     Active Substance: ASPIRIN
     Dosage: 81 MG
     Route: 048
  14. LACTOBACILLUS ACIDOPHILUS [Concomitant]
     Active Substance: LACTOBACILLUS ACIDOPHILUS
  15. ADCIRCA [Concomitant]
     Active Substance: TADALAFIL
     Dosage: 20 MG
  16. ORENITRAM [Suspect]
     Active Substance: TREPROSTINIL
     Indication: PRODUCT USED FOR UNKNOWN INDICATION
     Dosage: UNK
     Route: 065
  17. ORENITRAM [Suspect]
     Active Substance: TREPROSTINIL
     Dosage: 5 MG, TID
     Route: 065
  18. ORENITRAM [Suspect]
     Active Substance: TREPROSTINIL
     Dosage: 4.75 MG, TID
     Route: 065
  19. NEURONTIN [Concomitant]
     Active Substance: GABAPENTIN
     Dosage: 300 MG
  20. KLOR-CON [Concomitant]
     Active Substance: POTASSIUM CHLORIDE

REACTIONS (26)
  - Multiple allergies [Unknown]
  - Supraventricular extrasystoles [Unknown]
  - Palpitations [Recovered/Resolved]
  - Pain in extremity [Unknown]
  - Restless legs syndrome [Unknown]
  - Flushing [Unknown]
  - Condition aggravated [Recovered/Resolved]
  - Unevaluable event [Unknown]
  - Rhinorrhoea [Unknown]
  - Pain in jaw [Unknown]
  - Chest pain [Recovered/Resolved]
  - Neuralgia [Unknown]
  - Pulmonary arterial hypertension [Unknown]
  - Fatigue [Recovered/Resolved]
  - Dizziness [Recovered/Resolved]
  - Diarrhoea [Unknown]
  - Migraine [Unknown]
  - Abdominal pain [Recovered/Resolved]
  - Electrocardiogram T wave inversion [Recovered/Resolved]
  - Headache [Unknown]
  - Neck pain [Recovered/Resolved]
  - Abdominal discomfort [Recovered/Resolved]
  - Oxygen saturation decreased [Recovering/Resolving]
  - Dyspnoea exertional [Recovered/Resolved]
  - Hypokalaemia [Recovered/Resolved]
  - Decreased appetite [Unknown]

NARRATIVE: CASE EVENT DATE: 201910
